FAERS Safety Report 17203923 (Version 1)
Quarter: 2019Q4

REPORT INFORMATION
  Report Type: Spontaneous
  Country: CA (occurrence: CA)
  Receive Date: 20191226
  Receipt Date: 20191226
  Transmission Date: 20200122
  Serious: Yes (Disabling)
  Sender: FDA-Public Use
  Company Number: CA-TEVA-2019-CA-1157322

PATIENT
  Age: 45 Year
  Sex: Male

DRUGS (2)
  1. MIRTAZAPINE SANDOZ [Concomitant]
     Active Substance: MIRTAZAPINE
     Indication: PRODUCT USED FOR UNKNOWN INDICATION
     Route: 065
  2. OLANZAPINE. [Suspect]
     Active Substance: OLANZAPINE
     Indication: DELUSIONAL DISORDER, PERSECUTORY TYPE
     Dosage: 5 MILLIGRAM DAILY;
     Route: 048

REACTIONS (2)
  - Discomfort [Not Recovered/Not Resolved]
  - Hepatic function abnormal [Not Recovered/Not Resolved]
